FAERS Safety Report 17481614 (Version 2)
Quarter: 2020Q1

REPORT INFORMATION
  Report Type: Spontaneous
  Country: US (occurrence: US)
  Receive Date: 20200302
  Receipt Date: 20200320
  Transmission Date: 20200409
  Serious: Yes (Hospitalization, Other)
  Sender: FDA-Public Use
  Company Number: US-ROCHE-2559841

PATIENT
  Age: 68 Year
  Sex: Female
  Weight: 53.57 kg

DRUGS (3)
  1. ESBRIET [Suspect]
     Active Substance: PIRFENIDONE
     Indication: IDIOPATHIC PULMONARY FIBROSIS
     Route: 048
     Dates: start: 20191224
  2. ESBRIET [Suspect]
     Active Substance: PIRFENIDONE
     Route: 048
     Dates: start: 20200107, end: 20200114
  3. ESBRIET [Suspect]
     Active Substance: PIRFENIDONE
     Dosage: ONGOING NO
     Route: 048
     Dates: start: 20200115, end: 20200129

REACTIONS (9)
  - Myocardial necrosis marker increased [Unknown]
  - Dyspnoea [Recovered/Resolved]
  - Off label use [Unknown]
  - Muscle spasms [Recovering/Resolving]
  - Nausea [Recovered/Resolved]
  - Chest pain [Recovering/Resolving]
  - Intentional product use issue [Unknown]
  - Intentional product misuse [Unknown]
  - Dizziness [Recovered/Resolved]

NARRATIVE: CASE EVENT DATE: 20200107
